FAERS Safety Report 13334824 (Version 3)
Quarter: 2017Q2

REPORT INFORMATION
  Report Type: Report from Study
  Country: None (occurrence: US)
  Receive Date: 20170314
  Receipt Date: 20170525
  Transmission Date: 20170830
  Serious: Yes (Hospitalization, Other)
  Sender: FDA-Public Use
  Company Number: US-ABBVIE-17K-163-1899267-00

PATIENT
  Age: 70 Year
  Sex: Female

DRUGS (1)
  1. HUMIRA [Suspect]
     Active Substance: ADALIMUMAB
     Indication: RHEUMATOID ARTHRITIS
     Route: 058
     Dates: start: 20161011, end: 20170305

REACTIONS (8)
  - Chest pain [Recovered/Resolved]
  - Urticaria [Recovered/Resolved]
  - Dermatitis allergic [Recovered/Resolved]
  - Allergic oedema [Recovered/Resolved]
  - Tongue exfoliation [Recovered/Resolved]
  - Dizziness [Recovered/Resolved]
  - Swollen tongue [Recovered/Resolved]
  - Drug hypersensitivity [Unknown]

NARRATIVE: CASE EVENT DATE: 20170305
